FAERS Safety Report 9871524 (Version 2)
Quarter: 2014Q2

REPORT INFORMATION
  Report Type: Report from Study
  Country: US (occurrence: US)
  Receive Date: 20140205
  Receipt Date: 20140417
  Transmission Date: 20141212
  Serious: No
  Sender: FDA-Public Use
  Company Number: US-ALEXION-A201400219

PATIENT
  Sex: 0

DRUGS (2)
  1. SOLIRIS [Suspect]
     Indication: HAEMOLYTIC URAEMIC SYNDROME
     Dosage: 1200 MG, Q2W
     Route: 042
     Dates: start: 20111101
  2. NORMAL SALINE [Concomitant]
     Indication: CATHETER MANAGEMENT
     Dosage: UNK
     Route: 042
     Dates: start: 201312, end: 201312

REACTIONS (1)
  - Adverse reaction [Recovered/Resolved]
